FAERS Safety Report 5568053-5 (Version None)
Quarter: 2007Q4

REPORT INFORMATION
  Report Type: 
  Country: None (occurrence: None)
  Receive Date: 20071220
  Receipt Date: 20071210
  Transmission Date: 20080405
  Serious: Yes (Hospitalization, Other)
  Sender: FDA-Public Use
  Company Number: FR-ABBOTT-07P-056-0417920-00

PATIENT
  Sex: Female
  Weight: 55 kg

DRUGS (3)
  1. HUMIRA [Suspect]
     Indication: ANKYLOSING SPONDYLITIS
     Dosage: ONE INJECTION
     Route: 058
     Dates: start: 20061102, end: 20070515
  2. ACETAMINOPHEN W/ CODEINE [Concomitant]
     Indication: ANKYLOSING SPONDYLITIS
     Dosage: THREE DOSES DAILY
     Route: 048
  3. PREDNISONE [Concomitant]
     Indication: ARTHRALGIA
     Dosage: 15 MG DAILY
     Route: 048
     Dates: start: 20070510

REACTIONS (3)
  - ARTHRITIS [None]
  - PULMONARY GRANULOMA [None]
  - SARCOIDOSIS [None]
